FAERS Safety Report 17092664 (Version 1)
Quarter: 2019Q4

REPORT INFORMATION
  Report Type: Spontaneous
  Country: HK (occurrence: HK)
  Receive Date: 20191129
  Receipt Date: 20191129
  Transmission Date: 20200122
  Serious: Yes (Hospitalization, Other)
  Sender: FDA-Public Use
  Company Number: HK-ROCHE-2478101

PATIENT
  Sex: Male

DRUGS (17)
  1. RITUXIMAB. [Suspect]
     Active Substance: RITUXIMAB
     Dosage: 3 CYCLES WITH MBACOD AND HIGH DOSE METHOTREXATE
     Route: 065
     Dates: start: 20180816, end: 20181027
  2. OBINUTUZUMAB. [Suspect]
     Active Substance: OBINUTUZUMAB
     Dosage: 5 CYCLES WITH DHAP AND HIGH DOSE METHOTREXATE
     Route: 065
     Dates: start: 20190417, end: 20191009
  3. METHOTREXATE. [Suspect]
     Active Substance: METHOTREXATE
     Indication: DIFFUSE LARGE B-CELL LYMPHOMA
     Route: 037
     Dates: start: 20180601, end: 20180713
  4. CISPLATIN. [Suspect]
     Active Substance: CISPLATIN
     Indication: DIFFUSE LARGE B-CELL LYMPHOMA
     Route: 065
  5. METHOTREXATE. [Suspect]
     Active Substance: METHOTREXATE
     Dosage: 1 CYCLE OF HIGH DOSE METHOTREXATE WITH OBINUTUZUMAB AND GDP
     Route: 037
     Dates: start: 20190319, end: 20190319
  6. DEXAMETHASONE. [Suspect]
     Active Substance: DEXAMETHASONE
     Indication: DIFFUSE LARGE B-CELL LYMPHOMA
     Dosage: 5 CYCLES WITH OBINUTUZUMAB AND HIGH DOSE METHOTREXATE
     Route: 065
     Dates: start: 20190417, end: 20191009
  7. CYTARABINE. [Suspect]
     Active Substance: CYTARABINE
     Indication: DIFFUSE LARGE B-CELL LYMPHOMA
     Route: 065
  8. OBINUTUZUMAB. [Suspect]
     Active Substance: OBINUTUZUMAB
     Indication: DIFFUSE LARGE B-CELL LYMPHOMA
     Dosage: 1 CYCLE WITH GDP AND HIGH DOSE METHOTREXATE
     Route: 065
     Dates: start: 20190319, end: 20190319
  9. DOXORUBICIN [Suspect]
     Active Substance: DOXORUBICIN
     Indication: DIFFUSE LARGE B-CELL LYMPHOMA
     Route: 065
  10. VINCRISTINE [Suspect]
     Active Substance: VINCRISTINE
     Indication: DIFFUSE LARGE B-CELL LYMPHOMA
     Route: 065
  11. RITUXIMAB. [Suspect]
     Active Substance: RITUXIMAB
     Indication: DIFFUSE LARGE B-CELL LYMPHOMA
     Dosage: 3 CYCLES WITH CHOP AND INTRATHECAL METHOTREXATE
     Route: 065
     Dates: start: 20180601, end: 20180713
  12. PREDNISOLONE. [Suspect]
     Active Substance: PREDNISOLONE
     Indication: DIFFUSE LARGE B-CELL LYMPHOMA
     Route: 065
  13. METHOTREXATE. [Suspect]
     Active Substance: METHOTREXATE
     Dosage: 3 CYCLES OF HIGH DOSE (HD) METHOTREXATE WITH R-MBACOD
     Route: 037
     Dates: start: 20180816, end: 20181027
  14. METHOTREXATE. [Suspect]
     Active Substance: METHOTREXATE
     Dosage: 5 CYCLES OF HIGH DOSE METHOTREXATE WITH OBINUTUZUMAB AND DHAP
     Route: 037
     Dates: start: 20190417, end: 20191009
  15. CYCLOPHOSPHAMIDE. [Suspect]
     Active Substance: CYCLOPHOSPHAMIDE
     Indication: DIFFUSE LARGE B-CELL LYMPHOMA
     Dosage: 3 CYCLES WITH RITUXIMAB AND INTRATHECAL METHOTREXATE
     Route: 065
     Dates: start: 20180601, end: 20180713
  16. BLEOMYCIN [Suspect]
     Active Substance: BLEOMYCIN SULFATE
     Indication: DIFFUSE LARGE B-CELL LYMPHOMA
     Dosage: 3 CYCLES WITH RITUXIMAB AND HIGH DOSE METHOTREXATE
     Route: 065
     Dates: start: 20180816, end: 20181027
  17. GEMCITABINE. [Suspect]
     Active Substance: GEMCITABINE
     Indication: DIFFUSE LARGE B-CELL LYMPHOMA
     Dosage: 1CYCLE WITH OBINUTUZUMAB AND HIGH DOSE METHOTREXATE
     Route: 065
     Dates: start: 20190319, end: 20190319

REACTIONS (3)
  - Intentional product use issue [Unknown]
  - Pyrexia [Unknown]
  - Diffuse large B-cell lymphoma refractory [Unknown]
